FAERS Safety Report 15713037 (Version 1)
Quarter: 2018Q4

REPORT INFORMATION
  Report Type: Spontaneous
  Country: US (occurrence: US)
  Receive Date: 20181212
  Receipt Date: 20181212
  Transmission Date: 20190205
  Serious: No
  Sender: FDA-Public Use
  Company Number: US-ASTRAZENECA-2018SF61622

PATIENT
  Sex: Male

DRUGS (2)
  1. QUETIAPINE FUMARATE. [Suspect]
     Active Substance: QUETIAPINE FUMARATE
     Dosage: 800.0MG UNKNOWN
     Route: 048
  2. QUETIAPINE FUMARATE. [Suspect]
     Active Substance: QUETIAPINE FUMARATE
     Dosage: 800.0MG UNKNOWN
     Route: 048

REACTIONS (2)
  - Somnolence [Not Recovered/Not Resolved]
  - Wrong product administered [Not Recovered/Not Resolved]

NARRATIVE: CASE EVENT DATE: 20181206
